FAERS Safety Report 14737998 (Version 1)
Quarter: 2018Q2

REPORT INFORMATION
  Report Type: Report from Study
  Country: GB (occurrence: CN)
  Receive Date: 20180409
  Receipt Date: 20180409
  Transmission Date: 20180711
  Serious: Yes (Life-Threatening, Hospitalization)
  Sender: FDA-Public Use
  Company Number: GB-BAYER-2018-066203

PATIENT
  Sex: Female

DRUGS (3)
  1. IMIPENEM AND CILASTATIN [Concomitant]
     Active Substance: CILASTATIN SODIUM\IMIPENEM
     Indication: PNEUMONIA
     Dosage: UNK
  2. POTASSIUM CHLORIDE. [Concomitant]
     Active Substance: POTASSIUM CHLORIDE
     Indication: HYPOKALAEMIA
     Dosage: UNK
  3. AVELOX [Suspect]
     Active Substance: MOXIFLOXACIN HYDROCHLORIDE
     Indication: PNEUMONIA
     Dosage: UNK

REACTIONS (3)
  - Palpitations [None]
  - Torsade de pointes [None]
  - Adams-Stokes syndrome [None]
